FAERS Safety Report 13309883 (Version 1)
Quarter: 2017Q1

REPORT INFORMATION
  Report Type: Spontaneous
  Country: US (occurrence: US)
  Receive Date: 20170308
  Receipt Date: 20170308
  Transmission Date: 20170428
  Serious: Yes (Hospitalization)
  Sender: FDA-Public Use
  Company Number: None

PATIENT
  Age: 79 Year
  Sex: Male

DRUGS (1)
  1. IMATINIB 400MG SUN PHARMA [Suspect]
     Active Substance: IMATINIB
     Indication: GASTROINTESTINAL NEOPLASM
     Dosage: 400MG 1 TABLET DAILY P.O.
     Route: 048
     Dates: start: 20170206, end: 20170227

REACTIONS (1)
  - Renal disorder [None]

NARRATIVE: CASE EVENT DATE: 20170301
